FAERS Safety Report 24717572 (Version 1)
Quarter: 2024Q4

REPORT INFORMATION
  Report Type: Spontaneous
  Country: US (occurrence: US)
  Receive Date: 20241210
  Receipt Date: 20241210
  Transmission Date: 20250115
  Serious: No
  Sender: PFIZER
  Company Number: US-PFIZER INC-202400320196

PATIENT
  Age: 51 Year
  Sex: Female

DRUGS (1)
  1. IBRANCE [Suspect]
     Active Substance: PALBOCICLIB
     Dosage: 75 MG, CYCLIC, 1 TABLET BY MOUTH ONCE DAILY FOR 21 DAYS THEN STOP FOR 7 DAYS, THEN REPEAT
     Route: 048

REACTIONS (1)
  - Urinary tract disorder [Not Recovered/Not Resolved]
